FAERS Safety Report 13393769 (Version 1)
Quarter: 2017Q1

REPORT INFORMATION
  Report Type: Spontaneous
  Country: US (occurrence: US)
  Receive Date: 20170331
  Receipt Date: 20170331
  Transmission Date: 20170429
  Serious: Yes (Hospitalization, Other)
  Sender: FDA-Public Use
  Company Number: US-SAOL THERAPEUTICS-0700467044

PATIENT
  Sex: Female

DRUGS (3)
  1. BACLOFEN. [Suspect]
     Active Substance: BACLOFEN
     Indication: MUSCLE SPASTICITY
     Dosage: UNK
     Route: 037
  2. BACLOFEN ORAL [Suspect]
     Active Substance: BACLOFEN
     Dosage: UNK
     Route: 048
  3. TIZANIDINE. [Suspect]
     Active Substance: TIZANIDINE
     Route: 048

REACTIONS (9)
  - Medical device discomfort [Unknown]
  - Muscle spasms [Unknown]
  - Performance status decreased [Unknown]
  - Therapy non-responder [Unknown]
  - Implant site pain [Unknown]
  - Drug withdrawal syndrome [Unknown]
  - Pain [Unknown]
  - Malaise [Unknown]
  - Device failure [Recovered/Resolved]
